FAERS Safety Report 6557310-1 (Version None)
Quarter: 2010Q1

REPORT INFORMATION
  Report Type: 
  Country: None (occurrence: None)
  Receive Date: 20100127
  Receipt Date: 20100127
  Transmission Date: 20100710
  Serious: Yes (Hospitalization)
  Sender: FDA-Public Use
  Company Number: None

PATIENT
  Sex: Female

DRUGS (2)
  1. OPTIRAY 320 [Suspect]
     Indication: AORTIC ANEURYSM
     Dosage: 100 ML 4ML. SECOND IV BOLUS
     Route: 040
     Dates: start: 20100113, end: 20100113
  2. OPTIRAY 320 [Suspect]
     Indication: COMPUTERISED TOMOGRAM
     Dosage: 100 ML 4ML. SECOND IV BOLUS
     Route: 040
     Dates: start: 20100113, end: 20100113

REACTIONS (2)
  - DYSPNOEA [None]
  - PRURITUS GENERALISED [None]
